FAERS Safety Report 21533253 (Version 5)
Quarter: 2024Q4

REPORT INFORMATION
  Report Type: Report from Study
  Country: US (occurrence: US)
  Receive Date: 20221101
  Receipt Date: 20241017
  Transmission Date: 20250114
  Serious: No
  Sender: NOVARTIS
  Company Number: US-NOVARTISTESTPH-NVSC2022US243300

PATIENT
  Age: 38 Year
  Sex: Male

DRUGS (2)
  1. XIIDRA [Suspect]
     Active Substance: LIFITEGRAST
     Indication: Dry eye
     Dosage: 5 %, BID
     Route: 047
     Dates: start: 202207, end: 2022
  2. XIIDRA [Suspect]
     Active Substance: LIFITEGRAST
     Dosage: 5 %
     Route: 047
     Dates: start: 202208, end: 202210

REACTIONS (3)
  - Pharyngeal disorder [Unknown]
  - Discomfort [Recovered/Resolved]
  - Drug ineffective [Recovered/Resolved]

NARRATIVE: CASE EVENT DATE: 20220701
